FAERS Safety Report 14485621 (Version 3)
Quarter: 2018Q1

REPORT INFORMATION
  Report Type: Spontaneous
  Country: DE (occurrence: DE)
  Receive Date: 20180205
  Receipt Date: 20180323
  Transmission Date: 20180509
  Serious: Yes (Hospitalization, Other)
  Sender: FDA-Public Use
  Company Number: DE-GLAXOSMITHKLINE-DE2018GSK018787

PATIENT
  Age: 56 Year
  Sex: Male
  Weight: 70 kg

DRUGS (4)
  1. BUDESONIDE WITH FORMOTEROL [Concomitant]
     Indication: ASTHMA
     Dosage: 2 DF, BID (160 + 4.5 MCG)
     Route: 055
     Dates: start: 20161017
  2. NUCALA [Suspect]
     Active Substance: MEPOLIZUMAB
     Indication: ASTHMA
     Dosage: 100 MG, CYC
     Route: 058
     Dates: start: 20161027, end: 20180115
  3. TIOTROPIUM BROMIDE RESPIMAT [Concomitant]
     Indication: ASTHMA
     Dosage: 2 DF, QD (2.5 MCG)
     Route: 055
     Dates: start: 20161017
  4. MOMETASONE [Concomitant]
     Active Substance: MOMETASONE
     Indication: SINUSITIS
     Dosage: 2 DF, QD (50 MCG)
     Route: 061
     Dates: start: 20161017

REACTIONS (3)
  - Injection site discomfort [Unknown]
  - Injection site pain [Unknown]
  - Squamous cell carcinoma of skin [Unknown]

NARRATIVE: CASE EVENT DATE: 20180115
